FAERS Safety Report 9869903 (Version 5)
Quarter: 2014Q4

REPORT INFORMATION
  Report Type: Spontaneous
  Country: BR (occurrence: None)
  Receive Date: 20140203
  Receipt Date: 20141224
  Transmission Date: 20150529
  Serious: Yes (Hospitalization)
  Sender: FDA-Public Use
  Company Number: KAD201401-000119

PATIENT
  Age: 54 Year
  Sex: Female

DRUGS (17)
  1. LOPERAMIDE (LOPERAMIDE HCL) [Concomitant]
  2. ESOMEPRAZOLE (OMEPRAZOLE) [Concomitant]
  3. NORETHISTERONE (NORETHITERONE) [Concomitant]
  4. CHOLESTYRAMINE (CHOLESTYRAMINE) (CHOLESTYRAMINE) [Concomitant]
  5. BMS 914143 (PEGINTERFERON LAMBDA) [Suspect]
     Active Substance: PEGINTERFERON LAMBDA-1A
     Indication: CHRONIC HEPATITIS C
     Dosage: ONCE A WEEK, SUBCUTANEOUS
     Route: 058
     Dates: start: 20131127, end: 20140101
  6. HYDROXYZINE (HYDROXYZINE) [Concomitant]
     Active Substance: HYDROXYZINE HYDROCHLORIDE
  7. FOLIC ACID (FOLIC ACID) [Concomitant]
     Active Substance: FOLIC ACID
  8. PEGINTERFERON ALFA-2A [Suspect]
     Active Substance: PEGINTERFERON ALFA-2A
     Indication: CHRONIC HEPATITIS C
     Dosage: 180 MCG/WEEK, SUBCUTANEOUS
     Route: 058
     Dates: start: 20131127, end: 20140101
  9. ONDANSETRON (ONDANSETRON HCL) [Concomitant]
  10. DEXAMETHASONE (DEXAMETHASONE) [Concomitant]
     Active Substance: DEXAMETHASONE
  11. CHOLESTYRAMINE (CHOLESTYRAMINE) [Concomitant]
  12. TELAPREVIR (TELAPREVIR) [Suspect]
     Active Substance: TELAPREVIR
     Indication: CHRONIC HEPATITIS C
     Dosage: (2 PILLS EVERY 8 HOURS), ORAL
     Route: 048
     Dates: start: 20131127, end: 20140108
  13. PANTOPRAZOLE (PANTOPRAZOLE SODIUM) [Concomitant]
  14. URSODEOXYCHOLIC ACID (URSODEOXYCHOLIC ACID) UNKNOWN) [Concomitant]
     Active Substance: URSODIOL
  15. URSODEOXYCHOLIC ACID (URSODEOXYCHOLIC ACID) (UROSDEOXYCHOLIC ACID) [Concomitant]
  16. RIBAVIRIN (RIBAVIRIN) [Suspect]
     Active Substance: RIBAVIRIN
     Indication: HEPATITIS C
     Dosage: (2 PILLS IN AM AND 1 PILL IN PM), ORAL
     Route: 048
     Dates: start: 20131127, end: 20140108
  17. TELMISARTAN + HCTZ (TELMISARTAN, HYDROCHLORTHIAZIDE) [Concomitant]

REACTIONS (6)
  - Aspartate aminotransferase increased [None]
  - Jaundice [None]
  - Drug-induced liver injury [None]
  - Hypertransaminasaemia [None]
  - Gamma-glutamyltransferase increased [None]
  - Alanine aminotransferase increased [None]

NARRATIVE: CASE EVENT DATE: 20140104
